FAERS Safety Report 7004207-9 (Version None)
Quarter: 2010Q3

REPORT INFORMATION
  Report Type: 
  Country: None (occurrence: None)
  Receive Date: 20100920
  Receipt Date: 20100217
  Transmission Date: 20110219
  Serious: No
  Sender: FDA-Public Use
  Company Number: US-WYE-H13649110

PATIENT
  Age: 59 Year
  Sex: Female

DRUGS (2)
  1. PRISTIQ [Suspect]
     Indication: DEPRESSION
     Route: 048
     Dates: start: 20090901, end: 20090101
  2. PRISTIQ [Suspect]
     Indication: ANXIETY
     Dosage: ^TITRATED UP TO 100 MG DAILY^
     Route: 048
     Dates: start: 20090101, end: 20100101

REACTIONS (2)
  - ANORGASMIA [None]
  - LIBIDO INCREASED [None]
